FAERS Safety Report 10101424 (Version 4)
Quarter: 2015Q1

REPORT INFORMATION
  Report Type: Spontaneous
  Country: TR (occurrence: TR)
  Receive Date: 20140424
  Receipt Date: 20150325
  Transmission Date: 20150720
  Serious: Yes (Hospitalization, Other)
  Sender: FDA-Public Use
  Company Number: TR-RANBAXY-2014R1-80530

PATIENT
  Age: 26 Year
  Sex: Female

DRUGS (1)
  1. ISOTRETINOIN [Suspect]
     Active Substance: ISOTRETINOIN
     Indication: ACNE
     Dosage: 0.5 MG/KG, DAILY
     Route: 048

REACTIONS (4)
  - Atrial tachycardia [Recovering/Resolving]
  - Pericardial effusion [Recovering/Resolving]
  - Dry skin [Unknown]
  - Lip dry [Unknown]
